FAERS Safety Report 7678657-1 (Version None)
Quarter: 2011Q3

REPORT INFORMATION
  Report Type: 
  Country: None (occurrence: None)
  Receive Date: 20110811
  Receipt Date: 20110804
  Transmission Date: 20111222
  Serious: Yes (Other)
  Sender: FDA-Public Use
  Company Number: US-US-EMD SERONO, INC.-7075604

PATIENT
  Sex: Female

DRUGS (5)
  1. PROZAC [Concomitant]
  2. OXYBUTININ [Concomitant]
     Indication: POLLAKIURIA
  3. REBIF [Suspect]
     Indication: MULTIPLE SCLEROSIS
     Dates: start: 20110608
  4. REBIF [Suspect]
     Route: 058
  5. OXYBUTININ [Concomitant]
     Indication: BLADDER DISORDER

REACTIONS (4)
  - UTERINE DILATION AND CURETTAGE [None]
  - MUSCULOSKELETAL STIFFNESS [None]
  - INFLUENZA LIKE ILLNESS [None]
  - FATIGUE [None]
